FAERS Safety Report 8724522 (Version 2)
Quarter: 2012Q4

REPORT INFORMATION
  Report Type: 
  Country: JP (occurrence: JP)
  Receive Date: 20120815
  Receipt Date: 20120831
  Transmission Date: 20130627
  Serious: Yes (Other)
  Sender: FDA-Public Use
  Company Number: JP-TEVA-351977ISR

PATIENT
  Age: 66 Year
  Sex: Female

DRUGS (2)
  1. LANSOPRAZOLE-OD,TAB [Suspect]
     Indication: GASTROOESOPHAGEAL REFLUX DISEASE
     Dosage: 15 Milligram Daily;
     Route: 048
     Dates: start: 20120730
  2. OLMETEC TABLETS 20MG [Concomitant]
     Dosage: 20 Milligram Daily;
     Route: 048

REACTIONS (1)
  - Rhabdomyolysis [Recovered/Resolved]
